FAERS Safety Report 19801441 (Version 1)
Quarter: 2021Q3

REPORT INFORMATION
  Report Type: Spontaneous
  Country: US (occurrence: US)
  Receive Date: 20210907
  Receipt Date: 20210907
  Transmission Date: 20211014
  Serious: Yes (Other)
  Sender: FDA-Public Use
  Company Number: NVSC2021US200466

PATIENT
  Age: 86 Year
  Sex: Female

DRUGS (2)
  1. CARVEDILOL. [Suspect]
     Active Substance: CARVEDILOL
     Indication: STRESS CARDIOMYOPATHY
     Dosage: UNK
     Route: 065
  2. LISINOPRIL. [Suspect]
     Active Substance: LISINOPRIL
     Indication: STRESS CARDIOMYOPATHY
     Dosage: UNK
     Route: 065

REACTIONS (3)
  - Drug intolerance [Unknown]
  - Cardiogenic shock [Unknown]
  - Product use in unapproved indication [Unknown]
